FAERS Safety Report 4839544-7 (Version None)
Quarter: 2005Q4

REPORT INFORMATION
  Report Type: 
  Country: None (occurrence: None)
  Receive Date: 20051128
  Receipt Date: 20051128
  Transmission Date: 20060501
  Serious: Yes (Life-Threatening)
  Sender: FDA-Public Use
  Company Number: None

PATIENT
  Age: 11 Year
  Sex: Male
  Weight: 38.1022 kg

DRUGS (1)
  1. ADVAIR DISKUS 100/50 [Suspect]
     Indication: ASTHMA
     Dosage: 100/50 MG    ; 250/50 MG
     Dates: start: 20031106, end: 20050829

REACTIONS (3)
  - CHEST DISCOMFORT [None]
  - NASOPHARYNGEAL DISORDER [None]
  - REACTION TO DRUG EXCIPIENTS [None]
